FAERS Safety Report 16936147 (Version 1)
Quarter: 2019Q4

REPORT INFORMATION
  Report Type: Spontaneous
  Country: US (occurrence: US)
  Receive Date: 20191018
  Receipt Date: 20191018
  Transmission Date: 20200122
  Serious: No
  Sender: FDA-Public Use
  Company Number: US-INSMED, INC.-US-INS-19-02333

PATIENT
  Age: 92 Year
  Sex: Female
  Weight: 40.41 kg

DRUGS (4)
  1. ARIKAYCE [Suspect]
     Active Substance: AMIKACIN
     Indication: MYCOBACTERIAL INFECTION
     Route: 055
     Dates: start: 20190522, end: 2019
  2. LAMIRA NEBULIZER SYSTEM [Suspect]
     Active Substance: DEVICE
  3. ARIKAYCE [Suspect]
     Active Substance: AMIKACIN
     Route: 055
     Dates: start: 2019, end: 2019
  4. ARIKAYCE [Suspect]
     Active Substance: AMIKACIN
     Route: 055
     Dates: start: 2019

REACTIONS (4)
  - Device issue [Unknown]
  - Adverse drug reaction [Recovered/Resolved]
  - Intentional product misuse [Unknown]
  - Respiration abnormal [Unknown]

NARRATIVE: CASE EVENT DATE: 201905
